FAERS Safety Report 9885059 (Version 3)
Quarter: 2014Q1

REPORT INFORMATION
  Report Type: Report from Study
  Country: US (occurrence: US)
  Receive Date: 20140210
  Receipt Date: 20140324
  Transmission Date: 20141002
  Serious: Yes (Other)
  Sender: FDA-Public Use
  Company Number: PHEH2013US026249

PATIENT
  Age: 58 Year
  Sex: Female
  Weight: 62.6 kg

DRUGS (17)
  1. GLEEVEC [Suspect]
     Indication: CHRONIC MYELOID LEUKAEMIA
     Dosage: 400 MG, DAILY
     Route: 048
     Dates: start: 20131029
  2. GLEEVEC [Suspect]
     Dosage: 400 MG, QD
     Route: 048
     Dates: start: 20131217
  3. GLEEVEC [Suspect]
     Dosage: 400 MG, EVERY OTHER DAY
     Route: 048
  4. AMITRIPTYLINE [Concomitant]
     Dosage: 25 MG, QD
     Route: 048
  5. ASPIRIN [Concomitant]
     Dosage: UNK UKN, UNK
  6. BLACK COHOSH [Concomitant]
     Dosage: UNK UKN, UNK
  7. CRESTOR [Concomitant]
     Dosage: 20 MG, QD
     Route: 048
  8. FISH OIL [Concomitant]
     Dosage: 1000 MG, UNK
  9. FUROSEMIDE [Concomitant]
     Dosage: 20 MG, QD
     Route: 048
  10. LISINOPRIL [Concomitant]
     Dosage: 10 MG, QD
     Route: 048
  11. METFORMIN [Concomitant]
     Dosage: 500 MG, BID
     Route: 048
  12. POTASSIUM CHLORIDE [Concomitant]
     Dosage: 20 MEQ, QD
  13. TRIAMTERENE [Concomitant]
     Dosage: 37.5 MG, QD
     Route: 048
  14. HYDROCHLOROTHIAZID [Concomitant]
     Dosage: 25 MG, QD
     Route: 048
  15. VITAMIN D3 [Concomitant]
     Dosage: UNK UKN, UNK
  16. XALATAN [Concomitant]
     Dosage: 1 DRP, QD
     Route: 047
  17. XANAX [Concomitant]
     Dosage: 1 DF, QD
     Route: 048

REACTIONS (8)
  - Acute lymphocytic leukaemia [Unknown]
  - Second primary malignancy [Unknown]
  - Skin discolouration [Not Recovered/Not Resolved]
  - Neutrophil count decreased [Unknown]
  - Rash [Recovering/Resolving]
  - Muscle spasms [Not Recovered/Not Resolved]
  - Fatigue [Unknown]
  - Leukocytosis [Unknown]
